FAERS Safety Report 8067557-3 (Version None)
Quarter: 2012Q1

REPORT INFORMATION
  Report Type: 
  Country: None (occurrence: None)
  Receive Date: 20120124
  Receipt Date: 20120120
  Transmission Date: 20120608
  Serious: Yes (Other)
  Sender: FDA-Public Use
  Company Number: US-AMGEN-USASP2011051011

PATIENT
  Age: 54 Year
  Sex: Female
  Weight: 53.515 kg

DRUGS (10)
  1. AMBIEN [Concomitant]
     Dosage: 10 MG, UNK
  2. PROTONIX [Concomitant]
     Dosage: 40 MG, UNK
  3. DECADRON [Concomitant]
     Dosage: 4 MG, UNK
  4. DILAUDID [Concomitant]
     Dosage: 2 MG, UNK
  5. COMPAZINE [Concomitant]
     Dosage: 10 MG, UNK
  6. XGEVA [Suspect]
     Indication: METASTASES TO BONE
     Dosage: 120 MG, QMO
     Route: 058
     Dates: start: 20110613, end: 20110915
  7. AMBIEN [Concomitant]
     Dosage: 5 MG, UNK
  8. SYNTHROID [Concomitant]
     Dosage: 125 MUG, UNK
  9. LIORESAL [Concomitant]
     Dosage: 10 MG, UNK
  10. FASLODEX [Concomitant]

REACTIONS (9)
  - PAIN IN JAW [None]
  - BONE PAIN [None]
  - ARTHRALGIA [None]
  - TOOTHACHE [None]
  - FATIGUE [None]
  - MYALGIA [None]
  - ANAEMIA [None]
  - MYELOFIBROSIS [None]
  - THROMBOCYTOPENIA [None]
